FAERS Safety Report 18484792 (Version 1)
Quarter: 2020Q4

REPORT INFORMATION
  Report Type: Spontaneous
  Country: US (occurrence: US)
  Receive Date: 20201109
  Receipt Date: 20201109
  Transmission Date: 20210114
  Serious: Yes (Hospitalization)
  Sender: FDA-Public Use
  Company Number: None

PATIENT
  Age: 67 Year
  Sex: Female
  Weight: 63.5 kg

DRUGS (1)
  1. DOXIL [Suspect]
     Active Substance: DOXORUBICIN HYDROCHLORIDE
     Dates: end: 20201027

REACTIONS (7)
  - Orthopnoea [None]
  - Dyspnoea [None]
  - Back pain [None]
  - Tumour compression [None]
  - Breath sounds abnormal [None]
  - Pulmonary mass [None]
  - Pleural effusion [None]

NARRATIVE: CASE EVENT DATE: 20201027
